FAERS Safety Report 19083394 (Version 1)
Quarter: 2021Q2

REPORT INFORMATION
  Report Type: Spontaneous
  Country: JP (occurrence: JP)
  Receive Date: 20210401
  Receipt Date: 20210401
  Transmission Date: 20210717
  Serious: Yes (Hospitalization, Other)
  Sender: FDA-Public Use
  Company Number: JP-SUN PHARMACEUTICAL INDUSTRIES LTD-2021RR-287495

PATIENT
  Age: 70 Year
  Sex: Male

DRUGS (2)
  1. VALACICLOVIR [Suspect]
     Active Substance: VALACYCLOVIR HYDROCHLORIDE
     Indication: HERPES ZOSTER
     Dosage: 500 MILLIGRAM, 3DOSE/WEEK
     Route: 065
  2. BORTEZOMIB/DEXAMETHASONE [Concomitant]
     Indication: HERPES ZOSTER
     Dosage: 9 CYCLES, UNK
     Route: 065

REACTIONS (1)
  - Encephalopathy [Unknown]
